FAERS Safety Report 6072198-3 (Version None)
Quarter: 2009Q1

REPORT INFORMATION
  Report Type: 
  Country: None (occurrence: None)
  Receive Date: 20090206
  Receipt Date: 20090206
  Transmission Date: 20090719
  Serious: Yes (Life-Threatening)
  Sender: FDA-Public Use
  Company Number: None

PATIENT
  Age: 59 Year
  Sex: Male
  Weight: 75.7507 kg

DRUGS (1)
  1. METRONIDAZOLE [Suspect]
     Indication: DIVERTICULITIS
     Dosage: 1 3/DAY PO
     Route: 048
     Dates: start: 20090202, end: 20090204

REACTIONS (3)
  - FEELING ABNORMAL [None]
  - NAUSEA [None]
  - SYNCOPE [None]
